FAERS Safety Report 5362094-9 (Version None)
Quarter: 2007Q2

REPORT INFORMATION
  Report Type: 
  Country: None (occurrence: None)
  Receive Date: 20070615
  Receipt Date: 20070615
  Transmission Date: 20071010
  Serious: Yes (Death, Life-Threatening, Hospitalization)
  Sender: FDA-Public Use
  Company Number: None

PATIENT
  Age: 2 Year
  Sex: Male
  Weight: 13.9 kg

DRUGS (3)
  1. CHILDREN'S TYLENOL AND FLU UNKNOWN [Suspect]
     Indication: NASOPHARYNGITIS
     Dosage: PO LAST DOSE 1:00PM FEB 17
     Route: 048
  2. CHILDREN'S TYLENOL AND FLU UNKNOWN [Suspect]
     Indication: PYREXIA
     Dosage: PO LAST DOSE 1:00PM FEB 17
     Route: 048
  3. CHILDREN'S TYLENOL AND FLU UNKNOWN [Suspect]
     Indication: VOMITING
     Dosage: PO LAST DOSE 1:00PM FEB 17
     Route: 048

REACTIONS (14)
  - APNOEA [None]
  - COUGH [None]
  - DRUG TOXICITY [None]
  - DYSPNOEA [None]
  - FEELING HOT [None]
  - HYPERSOMNIA [None]
  - HYPOTONIA [None]
  - INFANTILE SPITTING UP [None]
  - INFLUENZA [None]
  - LETHARGY [None]
  - NASAL CONGESTION [None]
  - PULSE ABSENT [None]
  - PYREXIA [None]
  - VOMITING [None]
